FAERS Safety Report 26000438 (Version 1)
Quarter: 2025Q4

REPORT INFORMATION
  Report Type: Spontaneous
  Country: US (occurrence: US)
  Receive Date: 20251105
  Receipt Date: 20251105
  Transmission Date: 20260117
  Serious: No
  Sender: ANI
  Company Number: US-ANIPHARMA-2025-US-038403

PATIENT
  Age: 67 Year
  Sex: Male
  Weight: 79.38 kg

DRUGS (12)
  1. METOPROLOL SUCCINATE [Concomitant]
     Active Substance: METOPROLOL SUCCINATE
  2. SUZETRIGINE [Concomitant]
     Active Substance: SUZETRIGINE
  3. HUMIRA [Concomitant]
     Active Substance: ADALIMUMAB
  4. TRAMADOL [Concomitant]
     Active Substance: TRAMADOL
  5. NORVASC [Concomitant]
     Active Substance: AMLODIPINE BESYLATE
  6. ASPIRIN [Concomitant]
     Active Substance: ASPIRIN
  7. LIPITOR [Concomitant]
     Active Substance: ATORVASTATIN CALCIUM
  8. VALIUM [Concomitant]
     Active Substance: DIAZEPAM
  9. CYMBALTA [Concomitant]
     Active Substance: DULOXETINE HYDROCHLORIDE
  10. TRICOR [Concomitant]
     Active Substance: FENOFIBRATE
  11. GABAPENTIN [Concomitant]
     Active Substance: GABAPENTIN
  12. CORTICOTROPIN [Suspect]
     Active Substance: CORTICOTROPIN
     Indication: Product used for unknown indication
     Route: 058
     Dates: start: 20250807

REACTIONS (7)
  - Injection site erythema [Recovered/Resolved]
  - Injection site pain [Not Recovered/Not Resolved]
  - Injection site swelling [Recovered/Resolved]
  - Insomnia [Recovered/Resolved]
  - Injection site pruritus [Recovered/Resolved]
  - Diarrhoea [Recovered/Resolved]
  - Product dose omission issue [Recovered/Resolved]

NARRATIVE: CASE EVENT DATE: 20250808
